FAERS Safety Report 11333381 (Version 1)
Quarter: 2015Q3

REPORT INFORMATION
  Report Type: Spontaneous
  Country: US (occurrence: US)
  Receive Date: 20150803
  Receipt Date: 20150803
  Transmission Date: 20151125
  Serious: No
  Sender: FDA-Public Use
  Company Number: US-ELI_LILLY_AND_COMPANY-US200801006849

PATIENT
  Sex: Male

DRUGS (7)
  1. DESYREL [Concomitant]
     Active Substance: TRAZODONE HYDROCHLORIDE
  2. COGENTIN [Concomitant]
     Active Substance: BENZTROPINE MESYLATE
  3. THORAZINE [Concomitant]
     Active Substance: CHLORPROMAZINE
  4. MARIJUANA [Concomitant]
     Active Substance: CANNABIS SATIVA SUBSP. INDICA TOP
     Indication: MUSCULOSKELETAL DISCOMFORT
  5. ZOLOFT [Concomitant]
     Active Substance: SERTRALINE HYDROCHLORIDE
  6. NAVANE [Concomitant]
     Active Substance: THIOTHIXENE
  7. ZYPREXA [Suspect]
     Active Substance: OLANZAPINE
     Indication: BIPOLAR DISORDER

REACTIONS (5)
  - Nerve injury [Not Recovered/Not Resolved]
  - Varicose vein [Not Recovered/Not Resolved]
  - Influenza like illness [Recovered/Resolved]
  - Diabetes mellitus [Not Recovered/Not Resolved]
  - Peripheral vascular disorder [Not Recovered/Not Resolved]
